FAERS Safety Report 23991805 (Version 1)
Quarter: 2024Q2

REPORT INFORMATION
  Report Type: Spontaneous
  Country: BR (occurrence: BR)
  Receive Date: 20240619
  Receipt Date: 20240619
  Transmission Date: 20240716
  Serious: Yes (Hospitalization)
  Sender: FDA-Public Use
  Company Number: BR-BIOGEN-2023BI01203094

PATIENT
  Sex: Female
  Weight: 95 kg

DRUGS (6)
  1. AVONEX PEN [Suspect]
     Active Substance: INTERFERON BETA-1A
     Indication: Multiple sclerosis
     Route: 050
     Dates: start: 201811, end: 202107
  2. AVONEX PEN [Suspect]
     Active Substance: INTERFERON BETA-1A
     Route: 050
     Dates: start: 2018, end: 2020
  3. AVONEX PEN [Suspect]
     Active Substance: INTERFERON BETA-1A
  4. AVONEX PEN [Suspect]
     Active Substance: INTERFERON BETA-1A
  5. Donaren (Trazodone Hydrochloride) [Concomitant]
     Indication: Insomnia
     Route: 050
     Dates: start: 2019
  6. LOSARTAN [Concomitant]
     Active Substance: LOSARTAN
     Indication: Hypertension
     Route: 050

REACTIONS (8)
  - Multiple sclerosis relapse [Recovered/Resolved]
  - Cataract [Not Recovered/Not Resolved]
  - Arthropathy [Unknown]
  - Eye disorder [Unknown]
  - Eating disorder [Unknown]
  - Hand fracture [Recovered/Resolved with Sequelae]
  - Musculoskeletal stiffness [Not Recovered/Not Resolved]
  - Diarrhoea [Unknown]

NARRATIVE: CASE EVENT DATE: 20200101
